FAERS Safety Report 4822199-5 (Version None)
Quarter: 2005Q4

REPORT INFORMATION
  Report Type: 
  Country: None (occurrence: None)
  Receive Date: 20051103
  Receipt Date: 20051006
  Transmission Date: 20060501
  Serious: Yes (Other)
  Sender: FDA-Public Use
  Company Number: US-2005-021265

PATIENT
  Sex: Female

DRUGS (1)
  1. MIRENA [Suspect]
     Dosage: 20 ?G/DAY, CONT,INTRA-UTERINE
     Route: 015

REACTIONS (6)
  - ALOPECIA [None]
  - DEPRESSION [None]
  - DYSMENORRHOEA [None]
  - MENORRHAGIA [None]
  - METRORRHAGIA [None]
  - SOCIAL AVOIDANT BEHAVIOUR [None]
